FAERS Safety Report 12077317 (Version 1)
Quarter: 2016Q1

REPORT INFORMATION
  Report Type: Spontaneous
  Country: CH (occurrence: FR)
  Receive Date: 20160215
  Receipt Date: 20160215
  Transmission Date: 20160526
  Serious: Yes (Other)
  Sender: FDA-Public Use
  Company Number: CH-LPDUSPRD-20160117

PATIENT
  Age: 70 Year
  Sex: Male

DRUGS (1)
  1. FERINJECT [Suspect]
     Active Substance: FERRIC CARBOXYMALTOSE
     Dosage: 1 GM, 3X/YEAR
     Route: 065

REACTIONS (1)
  - Phosphorus metabolism disorder [Unknown]

NARRATIVE: CASE EVENT DATE: 201601
